FAERS Safety Report 6150712-7 (Version None)
Quarter: 2009Q2

REPORT INFORMATION
  Report Type: 
  Country: None (occurrence: None)
  Receive Date: 20090409
  Receipt Date: 20090407
  Transmission Date: 20091009
  Serious: Yes (Hospitalization)
  Sender: FDA-Public Use
  Company Number: FR-WYE-G03469009

PATIENT
  Sex: Female
  Weight: 7.5 kg

DRUGS (2)
  1. ADVIL [Suspect]
     Indication: PYREXIA
     Dosage: ONE SINGLE DOSE
     Route: 048
     Dates: start: 20090217, end: 20090217
  2. PARACETAMOL [Concomitant]
     Indication: PYREXIA
     Dosage: UNKNOWN
     Route: 048
     Dates: start: 20090217

REACTIONS (4)
  - DRUG INEFFECTIVE [None]
  - GASTRITIS EROSIVE [None]
  - HAEMATEMESIS [None]
  - RENAL FAILURE ACUTE [None]
